FAERS Safety Report 21714960 (Version 5)
Quarter: 2023Q2

REPORT INFORMATION
  Report Type: Report from Study
  Country: US (occurrence: US)
  Receive Date: 20221212
  Receipt Date: 20230621
  Transmission Date: 20230721
  Serious: Yes (Other)
  Sender: FDA-Public Use
  Company Number: US-UCBSA-2022063367

PATIENT
  Age: 18 Year
  Sex: Female
  Weight: 66.667 kg

DRUGS (5)
  1. FINTEPLA [Suspect]
     Active Substance: FENFLURAMINE
     Indication: Epilepsy
     Dosage: 3.5 MILLILITER, 2X/DAY (BID)
     Dates: start: 20200915, end: 2022
  2. FINTEPLA [Suspect]
     Active Substance: FENFLURAMINE
     Indication: Off label use
     Dosage: 2 MILLILITER, 2X/DAY (BID)
     Dates: start: 2022
  3. FINTEPLA [Suspect]
     Active Substance: FENFLURAMINE
     Indication: Severe myoclonic epilepsy of infancy
     Dosage: 2 MILLILITER, 2X/DAY (BID)
  4. FINTEPLA [Suspect]
     Active Substance: FENFLURAMINE
     Dosage: 1 MILLILITER, 2X/DAY (BID)
     Route: 048
     Dates: start: 20200915
  5. PIRACETAM [Suspect]
     Active Substance: PIRACETAM
     Indication: Eyelid myoclonus
     Dosage: UNK
     Dates: start: 20220801

REACTIONS (12)
  - Eyelid myoclonus [Recovering/Resolving]
  - Serum serotonin increased [Not Recovered/Not Resolved]
  - Behaviour disorder [Recovering/Resolving]
  - Respiratory tract infection [Not Recovered/Not Resolved]
  - Weight decreased [Not Recovered/Not Resolved]
  - Headache [Not Recovered/Not Resolved]
  - Diarrhoea [Not Recovered/Not Resolved]
  - Blepharospasm [Not Recovered/Not Resolved]
  - Insomnia [Recovering/Resolving]
  - Product use in unapproved indication [Unknown]
  - Drug effective for unapproved indication [Unknown]
  - Off label use [Unknown]

NARRATIVE: CASE EVENT DATE: 20220801
